FAERS Safety Report 15584740 (Version 2)
Quarter: 2018Q4

REPORT INFORMATION
  Report Type: Spontaneous
  Country: DE (occurrence: DE)
  Receive Date: 20181105
  Receipt Date: 20181109
  Transmission Date: 20190205
  Serious: Yes (Other)
  Sender: FDA-Public Use
  Company Number: DE-ASTELLAS-2018US047010

PATIENT
  Age: 80 Year
  Sex: Female

DRUGS (2)
  1. BETMIGA [Suspect]
     Active Substance: MIRABEGRON
     Indication: PRODUCT USED FOR UNKNOWN INDICATION
     Route: 065
  2. BETMIGA [Suspect]
     Active Substance: MIRABEGRON
     Route: 065

REACTIONS (6)
  - Cardiac disorder [Unknown]
  - Restlessness [Unknown]
  - Frequent bowel movements [Unknown]
  - Mobility decreased [Unknown]
  - Tachycardia [Unknown]
  - Palpitations [Unknown]
